FAERS Safety Report 9097280 (Version 2)
Quarter: 2013Q1

REPORT INFORMATION
  Report Type: Spontaneous
  Country: GB (occurrence: GB)
  Receive Date: 20130212
  Receipt Date: 20130320
  Transmission Date: 20140127
  Serious: Yes (Life-Threatening, Hospitalization, Other)
  Sender: FDA-Public Use
  Company Number: PHHY2013GB013550

PATIENT
  Sex: Male

DRUGS (8)
  1. OMNITROPE [Suspect]
     Indication: HORMONE REPLACEMENT THERAPY
     Dosage: 0.6 MG, UNK
     Route: 058
     Dates: start: 20100909
  2. GLICLAZIDE [Concomitant]
  3. METFORMIN [Concomitant]
  4. SITAGLIPTIN [Concomitant]
  5. THYROXINE [Concomitant]
  6. NEBIDO [Concomitant]
     Route: 030
  7. HYDROCORTISONE [Concomitant]
  8. SIMVASTATIN [Concomitant]

REACTIONS (1)
  - Gastrointestinal carcinoma [Unknown]
